FAERS Safety Report 9463132 (Version 1)
Quarter: 2013Q3

REPORT INFORMATION
  Report Type: Spontaneous
  Country: FR (occurrence: FR)
  Receive Date: 20130816
  Receipt Date: 20130816
  Transmission Date: 20140515
  Serious: Yes (Hospitalization)
  Sender: FDA-Public Use
  Company Number: FR-B.I. PHARMACEUTICALS,INC./RIDGEFIELD-2013-FF-02099FF

PATIENT
  Age: 85 Year
  Sex: Male

DRUGS (6)
  1. JOSIR [Suspect]
     Indication: HYPERTENSION
     Route: 048
  2. EBIXA [Concomitant]
     Indication: DEMENTIA ALZHEIMER^S TYPE
  3. PREVISCAN [Concomitant]
     Indication: PHLEBITIS
  4. INEXIUM [Concomitant]
  5. PEPSANE [Concomitant]
  6. CALCIUM/VITAMIN D [Concomitant]

REACTIONS (3)
  - Dysphagia [Recovered/Resolved]
  - Dysphagia [Recovered/Resolved]
  - Blood pressure decreased [Not Recovered/Not Resolved]
